FAERS Safety Report 10038044 (Version 1)
Quarter: 2014Q1

REPORT INFORMATION
  Report Type: Spontaneous
  Country: US (occurrence: None)
  Receive Date: 20140306
  Receipt Date: 20140306
  Transmission Date: 20141002
  Serious: Yes (Hospitalization, Other)
  Sender: FDA-Public Use
  Company Number: 163-21880-12063510

PATIENT
  Age: 84 Year
  Sex: Male
  Weight: 83.46 kg

DRUGS (21)
  1. REVLIMID (LENALIDOMIDE) (10 MILLIGRAM, CAPSULES) [Suspect]
     Indication: PLASMA CELL MYELOMA
     Dosage: 10 MG, 21 IN 28 D, PO  03/23/2012 - 04/14/2012
     Route: 048
     Dates: start: 20120323, end: 20120414
  2. MELPHALAN [Concomitant]
  3. PREDNISONE [Concomitant]
  4. TYLENOL #3 (SOLPADEINE) [Concomitant]
  5. ANDROGEL (TESTOSTERONE) [Concomitant]
  6. CLONAZEPAM [Concomitant]
  7. DEXILANT (DEXLANSOPRAZOLE) [Concomitant]
  8. FLOMAX (TAMSULOSIN HYDROCHLORIDE) [Concomitant]
  9. METORPOLOL SUCCINATE) [Concomitant]
  10. PREVACID (LANSOPRAZOLE) [Concomitant]
  11. DARBEPOIETIN ALFA [Concomitant]
  12. AREDIA (PAMIDRONATE SODIUM) [Concomitant]
  13. COZAAR (LOSARTAN  POTASSIUM) [Concomitant]
  14. EMLA (EMLA) (CREAM) [Concomitant]
  15. EVOXAC (CEVIMELINE HYDROCHLORIDE) [Concomitant]
  16. FLORICET (AXOTAL (OLD FORM) [Concomitant]
  17. SIMVASTATIN [Concomitant]
  18. PROCHLORPERAZINE  MALEATE [Concomitant]
  19. MIRALAX (MACROGOL) [Concomitant]
  20. AZITHROMYCIN [Concomitant]
  21. AMOXICLLIN+CLAVULANIC ACID (CLAVULANIC ACID, AMOXICILLIN) [Concomitant]

REACTIONS (13)
  - Neutrophil count decreased [None]
  - Anaemia [None]
  - Viral upper respiratory tract infection [None]
  - Dizziness [None]
  - Headache [None]
  - Nasal congestion [None]
  - Pyrexia [None]
  - Fatigue [None]
  - Decreased appetite [None]
  - Nausea [None]
  - Chest pain [None]
  - Dyspnoea exertional [None]
  - Hypotension [None]
